FAERS Safety Report 4980849-7 (Version None)
Quarter: 2006Q2

REPORT INFORMATION
  Report Type: 
  Country: None (occurrence: None)
  Receive Date: 20060424
  Receipt Date: 20060207
  Transmission Date: 20061013
  Serious: Yes (Other)
  Sender: FDA-Public Use
  Company Number: US-MERCK-0602USA01884

PATIENT
  Age: 57 Year
  Sex: Male
  Weight: 122 kg

DRUGS (4)
  1. VIOXX [Suspect]
     Indication: ARTHRALGIA
     Route: 048
     Dates: start: 20010801, end: 20040918
  2. PREVACID [Concomitant]
     Route: 065
  3. ASPIRIN [Concomitant]
     Route: 065
  4. CHONDROITIN SULFATE SODIUM AND GLUCOSAMINE HYDROCHLORIDE [Concomitant]
     Route: 065

REACTIONS (3)
  - CORONARY ARTERY DISEASE [None]
  - GASTROINTESTINAL DISORDER [None]
  - PALPITATIONS [None]
